FAERS Safety Report 5591088-3 (Version None)
Quarter: 2008Q1

REPORT INFORMATION
  Report Type: 
  Country: None (occurrence: None)
  Receive Date: 20080115
  Receipt Date: 20080107
  Transmission Date: 20080703
  Serious: Yes (Hospitalization, Other)
  Sender: FDA-Public Use
  Company Number: PHBS2008US00580

PATIENT
  Age: 61 Year
  Sex: Female

DRUGS (13)
  1. RIVASTIGMINE [Suspect]
     Indication: DEMENTIA ALZHEIMER'S TYPE
     Dosage: 3 MG, BID
     Route: 065
  2. CLONAZEPAM (NGX) [Concomitant]
     Indication: ANXIETY
     Dosage: 1.5 MG, TID
     Route: 065
  3. DEXTROAMPHETAMINE [Suspect]
     Indication: DEPRESSIVE SYMPTOM
     Dosage: 15 MG, BID
     Route: 065
  4. LAMOTRIGINE [Concomitant]
     Indication: BIPOLAR II DISORDER
     Dosage: 100 MG, BID
     Route: 065
  5. LANSOPRAZOLE [Concomitant]
     Indication: REFLUX OESOPHAGITIS
     Dosage: 30 MG, QD
     Route: 065
  6. LEVOTHYROXINE SODIUM [Concomitant]
     Indication: HYPOTHYROIDISM
     Dosage: 125 MG, QD
     Route: 065
  7. MEMANTINE HCL [Concomitant]
     Indication: DEMENTIA ALZHEIMER'S TYPE
     Dosage: 10 MG, BID
     Route: 065
  8. QUETIAPINE [Concomitant]
     Indication: INSOMNIA
     Dosage: 300 MG, QHS
     Route: 065
  9. RISPERIDONE [Concomitant]
     Indication: BIPOLAR II DISORDER
     Dosage: 3 MG/D
     Route: 065
  10. RISPERIDONE [Concomitant]
     Dosage: 1 MG, QHS
     Route: 065
  11. TRANYLCYPROMINE SULFATE [Concomitant]
     Indication: DEPRESSIVE SYMPTOM
     Dosage: 30 MG, BID
     Route: 065
  12. TRAZODONE HCL [Concomitant]
     Indication: INSOMNIA
     Dosage: 50 MG, QHS
     Route: 065
  13. ZOLPIDEM [Concomitant]
     Indication: INSOMNIA
     Dosage: 10 MG, QHS
     Route: 065

REACTIONS (5)
  - ANXIETY [None]
  - CHEST DISCOMFORT [None]
  - DRUG INTERACTION [None]
  - DYSPNOEA [None]
  - DYSTONIA [None]
